FAERS Safety Report 19199349 (Version 1)
Quarter: 2021Q2

REPORT INFORMATION
  Report Type: Spontaneous
  Country: MY (occurrence: MY)
  Receive Date: 20210430
  Receipt Date: 20210430
  Transmission Date: 20210717
  Serious: Yes (Other)
  Sender: FDA-Public Use
  Company Number: MY-PFIZER INC-2021451099

PATIENT
  Age: 75 Year
  Sex: Male

DRUGS (2)
  1. PHENYTOIN SODIUM. [Suspect]
     Active Substance: PHENYTOIN SODIUM
     Dosage: 1 G
     Route: 042
  2. PHENYTOIN SODIUM. [Suspect]
     Active Substance: PHENYTOIN SODIUM
     Dosage: 100 MG, 3X/DAY
     Route: 042

REACTIONS (2)
  - Toxicity to various agents [Recovered/Resolved]
  - Atrioventricular block complete [Recovered/Resolved]
